FAERS Safety Report 7302959-1 (Version None)
Quarter: 2011Q1

REPORT INFORMATION
  Report Type: 
  Country: None (occurrence: None)
  Receive Date: 20110220
  Receipt Date: 20110209
  Transmission Date: 20110831
  Serious: Yes (Hospitalization)
  Sender: FDA-Public Use
  Company Number: US-BAYER-2011-013547

PATIENT
  Sex: Male
  Weight: 73 kg

DRUGS (9)
  1. LISINOPRIL [Concomitant]
  2. PLAVIX [Concomitant]
  3. ALEVE (CAPLET) [Suspect]
     Indication: PRODUCT USED FOR UNKNOWN INDICATION
     Dosage: 440 MG, UNK
     Route: 048
  4. ZETIA [Concomitant]
  5. CENTRUM SILVER [Concomitant]
  6. ZANTAC [Concomitant]
  7. FISH OIL [Concomitant]
  8. CHOLESTEROL- AND TRIGLYCERIDE REDUCERS [Concomitant]
  9. ZOLOFT [Concomitant]

REACTIONS (7)
  - HEMIPARESIS [None]
  - DUODENAL ULCER [None]
  - SMALL INTESTINAL HAEMORRHAGE [None]
  - WEIGHT DECREASED [None]
  - CEREBROVASCULAR ACCIDENT [None]
  - GAIT DISTURBANCE [None]
  - HAEMOGLOBIN DECREASED [None]
